FAERS Safety Report 4498561-X (Version None)
Quarter: 2004Q4

REPORT INFORMATION
  Report Type: 
  Country: None (occurrence: None)
  Receive Date: 20041108
  Receipt Date: 20041028
  Transmission Date: 20050328
  Serious: Yes (Hospitalization)
  Sender: FDA-Public Use
  Company Number: 200415118BCC

PATIENT
  Age: 16 Year
  Sex: Female

DRUGS (1)
  1. MIDOL [Suspect]
     Indication: DYSMENORRHOEA
     Dosage: BID, ORAL
     Route: 048
     Dates: start: 19790807

REACTIONS (7)
  - COMA [None]
  - DUODENAL ULCER HAEMORRHAGE [None]
  - GASTRIC DISORDER [None]
  - HAEMATEMESIS [None]
  - HAEMORRHAGE [None]
  - NAUSEA [None]
  - SHOCK [None]
